FAERS Safety Report 18019196 (Version 1)
Quarter: 2020Q3

REPORT INFORMATION
  Report Type: Spontaneous
  Country: US (occurrence: US)
  Receive Date: 20200710
  Receipt Date: 20200710
  Transmission Date: 20201103
  Serious: No
  Sender: FDA-Public Use
  Company Number: None

PATIENT

DRUGS (1)
  1. BLUMEN CLEAR ADVANCED HAND SANITIZER [Suspect]
     Active Substance: ALCOHOL
     Indication: INFECTION PROPHYLAXIS
     Dosage: ?          QUANTITY:17 OUNCE(S);?
     Route: 061
     Dates: start: 20200603, end: 20200710

REACTIONS (6)
  - Toxicity to various agents [None]
  - Decreased appetite [None]
  - Rash [None]
  - Eye irritation [None]
  - Headache [None]
  - Recalled product [None]

NARRATIVE: CASE EVENT DATE: 20200710
